FAERS Safety Report 7499964-1 (Version None)
Quarter: 2011Q2

REPORT INFORMATION
  Report Type: 
  Country: None (occurrence: None)
  Receive Date: 20110517
  Receipt Date: 20110506
  Transmission Date: 20111010
  Serious: Yes (Death, Hospitalization)
  Sender: FDA-Public Use
  Company Number: 2011AP000922

PATIENT
  Age: 9 Year
  Sex: Male

DRUGS (5)
  1. THIOPENTONE SODIUM (THIOPENTAL SODIUM) [Concomitant]
  2. LAMOTRIGINE [Suspect]
     Indication: PRODUCT USED FOR UNKNOWN INDICATION
  3. LEVETIRACETAM [Suspect]
  4. VITAMIN K TAB [Concomitant]
  5. DIAZEPAM [Concomitant]

REACTIONS (6)
  - DYSTONIA [None]
  - ENCEPHALOPATHY [None]
  - NUCLEAR MAGNETIC RESONANCE IMAGING BRAIN ABNORMAL [None]
  - STATUS EPILEPTICUS [None]
  - CHOREOATHETOSIS [None]
  - CARDIO-RESPIRATORY ARREST [None]
